FAERS Safety Report 5233362-6 (Version None)
Quarter: 2007Q1

REPORT INFORMATION
  Report Type: 
  Country: None (occurrence: None)
  Receive Date: 20070206
  Receipt Date: 20070206
  Transmission Date: 20070707
  Serious: Yes (Life-Threatening, Hospitalization, Other)
  Sender: FDA-Public Use
  Company Number: None

PATIENT
  Age: 47 Year
  Sex: Female
  Weight: 74.8435 kg

DRUGS (1)
  1. AVINZA 30 MG [Suspect]
     Indication: CYSTITIS INTERSTITIAL
     Dosage: CAPSULE  1 PER DAY PO
     Route: 048
     Dates: start: 20061217, end: 20070110

REACTIONS (4)
  - DYSPHONIA [None]
  - DYSPNOEA [None]
  - SPEECH DISORDER [None]
  - THROAT TIGHTNESS [None]
